FAERS Safety Report 5737699-3 (Version None)
Quarter: 2008Q2

REPORT INFORMATION
  Report Type: 
  Country: None (occurrence: None)
  Receive Date: 20080513
  Receipt Date: 20080513
  Transmission Date: 20081010
  Serious: Yes (Life-Threatening, Other)
  Sender: FDA-Public Use
  Company Number: None

PATIENT
  Age: 44 Year
  Sex: Female
  Weight: 58.9676 kg

DRUGS (1)
  1. DIGOXIN HIGHEST DOSAGE UNSURE AT THIS [Suspect]
     Indication: CARDIAC DISORDER
     Dosage: TWICE DAILY
     Dates: start: 20060124, end: 20071225

REACTIONS (6)
  - DEPRESSION [None]
  - HEART RATE DECREASED [None]
  - INCORRECT DOSE ADMINISTERED [None]
  - PHARMACEUTICAL PRODUCT COMPLAINT [None]
  - SYNCOPE [None]
  - THERAPEUTIC AGENT TOXICITY [None]
